FAERS Safety Report 25808943 (Version 2)
Quarter: 2025Q3

REPORT INFORMATION
  Report Type: Report from Study
  Country: US (occurrence: US)
  Receive Date: 20250916
  Receipt Date: 20250925
  Transmission Date: 20251020
  Serious: No
  Sender: MALLINCKRODT
  Company Number: US-MALLINCKRODT-MNK202505392

PATIENT
  Age: 40 Year
  Sex: Female

DRUGS (2)
  1. CORTICOTROPIN [Suspect]
     Active Substance: CORTICOTROPIN
     Indication: Nephrotic syndrome
  2. CORTICOTROPIN [Suspect]
     Active Substance: CORTICOTROPIN
     Indication: Nephrotic syndrome
     Route: 058

REACTIONS (6)
  - Urine protein/creatinine ratio [Unknown]
  - Blood triglycerides increased [Unknown]
  - White blood cell count increased [Unknown]
  - Glucose tolerance impaired [Unknown]
  - Protein total abnormal [Unknown]
  - Weight increased [Unknown]
